FAERS Safety Report 21674699 (Version 1)
Quarter: 2022Q4

REPORT INFORMATION
  Report Type: Spontaneous
  Country: US (occurrence: None)
  Receive Date: 20221201
  Receipt Date: 20221201
  Transmission Date: 20230112
  Serious: Yes (Hospitalization, Other)
  Sender: FDA-Public Use
  Company Number: None

PATIENT
  Age: 28 Year
  Sex: Male
  Weight: 262.8 kg

DRUGS (5)
  1. ORITAVANCIN [Suspect]
     Active Substance: ORITAVANCIN
     Indication: Skin bacterial infection
     Dosage: FREQUENCY : ONCE;?
     Route: 041
     Dates: start: 20220923, end: 20221017
  2. ORITAVANCIN [Suspect]
     Active Substance: ORITAVANCIN
     Indication: Morganella infection
  3. ORITAVANCIN [Suspect]
     Active Substance: ORITAVANCIN
     Indication: Corynebacterium infection
  4. ORITAVANCIN [Suspect]
     Active Substance: ORITAVANCIN
     Indication: Enterococcal infection
  5. ORITAVANCIN [Suspect]
     Active Substance: ORITAVANCIN
     Indication: Peptostreptococcus infection

REACTIONS (5)
  - Chest pain [None]
  - Chills [None]
  - Asthenia [None]
  - Infusion related reaction [None]
  - Bundle branch block right [None]

NARRATIVE: CASE EVENT DATE: 20221017
